FAERS Safety Report 16149959 (Version 2)
Quarter: 2019Q2

REPORT INFORMATION
  Report Type: Spontaneous
  Country: IN (occurrence: IN)
  Receive Date: 20190403
  Receipt Date: 20190410
  Transmission Date: 20190711
  Serious: Yes (Life-Threatening, Hospitalization, Other)
  Sender: FDA-Public Use
  Company Number: IN-TORRENT-00002179

PATIENT
  Age: 33 Year
  Sex: Male

DRUGS (5)
  1. TOPIRAMATE. [Suspect]
     Active Substance: TOPIRAMATE
     Indication: PERSONALITY CHANGE
     Dosage: 50 MG BD
  2. PROMETHAZINE [Concomitant]
     Active Substance: PROMETHAZINE\PROMETHAZINE HYDROCHLORIDE
     Indication: PSYCHOMOTOR HYPERACTIVITY
     Dosage: 6 HOURLY FOR THE FIRST DAY, REDUCING 8 HOURLY SECOND AND 12 HOURLY THIRD DAY
  3. OLANZAPINE. [Suspect]
     Active Substance: OLANZAPINE
     Indication: PSYCHOMOTOR HYPERACTIVITY
     Dosage: 5 MG BD
  4. SODIUM VALPROATE [Suspect]
     Active Substance: VALPROATE SODIUM
     Indication: JUDGEMENT IMPAIRED
     Dosage: 500 MG TDS
  5. HALOPERIDOL. [Concomitant]
     Active Substance: HALOPERIDOL
     Indication: HALLUCINATION, AUDITORY
     Dosage: PARENTERAL

REACTIONS (1)
  - Stevens-Johnson syndrome [Unknown]
